FAERS Safety Report 5611153-1 (Version None)
Quarter: 2008Q1

REPORT INFORMATION
  Report Type: 
  Country: None (occurrence: None)
  Receive Date: 20080201
  Receipt Date: 20080121
  Transmission Date: 20080703
  Serious: Yes (Other)
  Sender: FDA-Public Use
  Company Number: NL-GILEAD-2008-0015085

PATIENT

DRUGS (3)
  1. HEPSERA [Suspect]
     Indication: HEPATITIS B
  2. VIREAD [Suspect]
     Indication: HEPATITIS B
  3. LAMIVUDINE [Concomitant]
     Indication: HEPATITIS B

REACTIONS (1)
  - VIRAL LOAD INCREASED [None]
